FAERS Safety Report 4770710-5 (Version None)
Quarter: 2005Q3

REPORT INFORMATION
  Report Type: 
  Country: None (occurrence: None)
  Receive Date: 20050915
  Receipt Date: 20050527
  Transmission Date: 20060218
  Serious: Yes (Hospitalization)
  Sender: FDA-Public Use
  Company Number: US-MERCK-0506USA00397

PATIENT
  Age: 71 Year
  Sex: Male
  Weight: 103 kg

DRUGS (12)
  1. VIOXX [Suspect]
     Indication: POLYARTHRITIS
     Route: 048
     Dates: start: 20000501, end: 20030101
  2. VIOXX [Suspect]
     Route: 048
     Dates: end: 20031001
  3. VIOXX [Suspect]
     Route: 048
     Dates: start: 20030101
  4. PRINIVIL [Concomitant]
     Indication: HYPERTENSION
     Route: 048
     Dates: start: 19990201, end: 20000901
  5. LISINOPRIL [Concomitant]
     Indication: HYPERTENSION
     Route: 065
     Dates: start: 20000901
  6. NORVASC [Concomitant]
     Route: 065
     Dates: start: 19970805
  7. HYDRODIURIL [Concomitant]
     Indication: POLYURIA
     Route: 048
     Dates: start: 19970101
  8. NAPROSYN [Concomitant]
     Indication: PAIN
     Route: 065
     Dates: start: 19960101
  9. HYDROCODONE BITARTRATE [Concomitant]
     Indication: PAIN
     Route: 065
     Dates: start: 19990301
  10. COLCHICINE [Concomitant]
     Indication: GOUT
     Route: 065
  11. BISOPROLOL [Concomitant]
     Indication: HYPERTENSION
     Route: 065
  12. ZESTRIL [Concomitant]
     Indication: HYPERTENSION
     Route: 065
     Dates: start: 19990101

REACTIONS (15)
  - ACUTE MYOCARDIAL INFARCTION [None]
  - AORTIC VALVE INCOMPETENCE [None]
  - CORONARY ARTERY OCCLUSION [None]
  - DEPRESSION [None]
  - DIABETES MELLITUS NON-INSULIN-DEPENDENT [None]
  - DRUG ADMINISTRATION ERROR [None]
  - EJECTION FRACTION DECREASED [None]
  - ELECTROCARDIOGRAM ST SEGMENT ELEVATION [None]
  - HAEMATOCHEZIA [None]
  - HAEMORRHOIDS [None]
  - LIPASE ABNORMAL [None]
  - MITRAL VALVE INCOMPETENCE [None]
  - PAIN [None]
  - PULMONARY VALVE INCOMPETENCE [None]
  - TREATMENT NONCOMPLIANCE [None]
